FAERS Safety Report 9966222 (Version 1)
Quarter: 2014Q1

REPORT INFORMATION
  Report Type: Report from Study
  Country: US (occurrence: US)
  Receive Date: 20140305
  Receipt Date: 20140305
  Transmission Date: 20141002
  Serious: No
  Sender: FDA-Public Use
  Company Number: US-ABBVIE-13P-163-1121548-00

PATIENT
  Age: 79 Year
  Sex: Female
  Weight: 54.48 kg

DRUGS (6)
  1. HUMIRA [Suspect]
     Indication: CROHN^S DISEASE
     Dosage: INDUCTION DOSE
     Dates: start: 201306, end: 201306
  2. HUMIRA [Suspect]
     Dosage: ON DAY 15
     Dates: start: 201306, end: 201306
  3. HUMIRA [Suspect]
     Dates: start: 201307
  4. PREDNISONE [Concomitant]
     Indication: CROHN^S DISEASE
  5. ASACOL [Concomitant]
     Indication: CROHN^S DISEASE
  6. XANAX [Concomitant]
     Indication: INSOMNIA

REACTIONS (1)
  - Rash [Not Recovered/Not Resolved]
